FAERS Safety Report 8518207-0 (Version None)
Quarter: 2012Q3

REPORT INFORMATION
  Report Type: 
  Country: None (occurrence: None)
  Receive Date: 20120718
  Receipt Date: 20111111
  Transmission Date: 20120928
  Serious: No
  Sender: FDA-Public Use
  Company Number: US-BRISTOL-MYERS SQUIBB COMPANY-16219727

PATIENT
  Age: 49 Year
  Sex: Female

DRUGS (2)
  1. LOVENOX [Suspect]
     Indication: THROMBOSIS
     Dates: start: 20110913
  2. COUMADIN [Suspect]

REACTIONS (2)
  - INJECTION SITE HAEMATOMA [None]
  - INTERNATIONAL NORMALISED RATIO DECREASED [None]
